FAERS Safety Report 17639537 (Version 1)
Quarter: 2020Q2

REPORT INFORMATION
  Report Type: Spontaneous
  Country: FR (occurrence: FR)
  Receive Date: 20200407
  Receipt Date: 20200407
  Transmission Date: 20200713
  Serious: Yes (Other)
  Sender: FDA-Public Use
  Company Number: FR-LEO PHARMA-329063

PATIENT
  Age: 75 Year
  Sex: Female

DRUGS (1)
  1. PICATO [Suspect]
     Active Substance: INGENOL MEBUTATE
     Indication: ACTINIC KERATOSIS
     Route: 003
     Dates: start: 20150415, end: 20150417

REACTIONS (1)
  - Bowen^s disease [Not Recovered/Not Resolved]

NARRATIVE: CASE EVENT DATE: 201902
